FAERS Safety Report 11496309 (Version 1)
Quarter: 2015Q3

REPORT INFORMATION
  Report Type: Spontaneous
  Country: FR (occurrence: FR)
  Receive Date: 20150911
  Receipt Date: 20150911
  Transmission Date: 20151125
  Serious: Yes (Other)
  Sender: FDA-Public Use
  Company Number: FR-GLAXOSMITHKLINE-FR2015GSK019964

PATIENT
  Age: 1 Year
  Sex: Female
  Weight: 9.3 kg

DRUGS (1)
  1. ZOVIRAX [Suspect]
     Active Substance: ACYCLOVIR
     Indication: HERPES SIMPLEX MENINGOENCEPHALITIS
     Dosage: 225 MG, UNK
     Route: 042
     Dates: start: 20150122, end: 20150123

REACTIONS (2)
  - Infusion site necrosis [Not Recovered/Not Resolved]
  - Product preparation error [Unknown]

NARRATIVE: CASE EVENT DATE: 20150123
